FAERS Safety Report 20412723 (Version 1)
Quarter: 2022Q1

REPORT INFORMATION
  Report Type: Report from Study
  Country: FR (occurrence: FR)
  Receive Date: 20220201
  Receipt Date: 20220201
  Transmission Date: 20220423
  Serious: Yes (Hospitalization, Other)
  Sender: FDA-Public Use
  Company Number: FR-AMGEN-FRANI2022014763

PATIENT
  Age: 73 Year
  Sex: Male

DRUGS (2)
  1. AMG-510 [Suspect]
     Active Substance: AMG-510
     Indication: Non-small cell lung cancer metastatic
     Dosage: 960 MILLIGRAM, QD
     Route: 048
     Dates: start: 20210730
  2. AMG-510 [Suspect]
     Active Substance: AMG-510
     Indication: K-ras gene mutation

REACTIONS (1)
  - Hepatitis cholestatic [Recovered/Resolved]

NARRATIVE: CASE EVENT DATE: 20210927
